FAERS Safety Report 4502721-9 (Version None)
Quarter: 2004Q4

REPORT INFORMATION
  Report Type: 
  Country: None (occurrence: None)
  Receive Date: 20041112
  Receipt Date: 20041029
  Transmission Date: 20050328
  Serious: Yes (Disabling, Other)
  Sender: FDA-Public Use
  Company Number: SUS1-2004-00632

PATIENT
  Age: 7 Year
  Sex: Female
  Weight: 21.8 kg

DRUGS (2)
  1. ADDERALL XR (SEE IMAGE) [Suspect]
     Indication: ATTENTION DEFICIT/HYPERACTIVITY DISORDER
     Dosage: SEE IMAGE
     Dates: start: 20040120, end: 20040501
  2. ADDERALL XR (SEE IMAGE) [Suspect]
     Indication: ATTENTION DEFICIT/HYPERACTIVITY DISORDER
     Dosage: SEE IMAGE
     Dates: start: 20040501, end: 20040920

REACTIONS (19)
  - ABNORMAL BEHAVIOUR [None]
  - ANXIETY [None]
  - ATTENTION DEFICIT/HYPERACTIVITY DISORDER [None]
  - CONSTIPATION [None]
  - DELUSION [None]
  - DISEASE RECURRENCE [None]
  - DRUG WITHDRAWAL SYNDROME [None]
  - FEAR [None]
  - FEELING ABNORMAL [None]
  - GRAND MAL CONVULSION [None]
  - HEART RATE INCREASED [None]
  - MARKEDLY REDUCED DIETARY INTAKE [None]
  - OVERDOSE [None]
  - PANIC REACTION [None]
  - PSYCHOTIC DISORDER [None]
  - REFUSAL OF TREATMENT BY RELATIVE [None]
  - THEFT [None]
  - TONIC CONVULSION [None]
  - URINARY INCONTINENCE [None]
